FAERS Safety Report 5695863-6 (Version None)
Quarter: 2008Q2

REPORT INFORMATION
  Report Type: 
  Country: None (occurrence: None)
  Receive Date: 20080404
  Receipt Date: 20080404
  Transmission Date: 20081010
  Serious: Yes (Other)
  Sender: FDA-Public Use
  Company Number: None

PATIENT

DRUGS (7)
  1. VYTORIN [Suspect]
     Indication: BLOOD CHOLESTEROL INCREASED
     Dosage: 10/20 1 EVERY OTHER DAY ORAL
     Route: 048
     Dates: start: 20070701, end: 20071230
  2. VITAMIN CAP [Concomitant]
  3. CALCIUM [Concomitant]
  4. ACTONEL [Concomitant]
  5. ZYRTEC [Concomitant]
  6. NASACORT AQ [Concomitant]
  7. PREMARIN [Concomitant]

REACTIONS (9)
  - FATIGUE [None]
  - GASTROINTESTINAL DISORDER [None]
  - ILL-DEFINED DISORDER [None]
  - MUSCLE CONTRACTIONS INVOLUNTARY [None]
  - MUSCLE SPASMS [None]
  - MYALGIA [None]
  - PAIN [None]
  - PROCTITIS ULCERATIVE [None]
  - STRESS [None]
